FAERS Safety Report 20380961 (Version 1)
Quarter: 2022Q1

REPORT INFORMATION
  Report Type: Other
  Country: AU (occurrence: AU)
  Receive Date: 20220127
  Receipt Date: 20220127
  Transmission Date: 20220424
  Serious: Yes (Other)
  Sender: FDA-Public Use
  Company Number: None

PATIENT

DRUGS (4)
  1. VENLAFAXINE [Suspect]
     Active Substance: VENLAFAXINE HYDROCHLORIDE
     Indication: Product used for unknown indication
     Dosage: UNK
     Route: 065
  2. CLINDAMYCIN [Suspect]
     Active Substance: CLINDAMYCIN
     Indication: Product used for unknown indication
     Dosage: UNK
     Route: 065
  3. DIAZEPAM [Suspect]
     Active Substance: DIAZEPAM
     Indication: Product used for unknown indication
     Dosage: UNK
     Route: 065
  4. SEROQUEL [Suspect]
     Active Substance: QUETIAPINE FUMARATE
     Indication: Product used for unknown indication
     Dosage: UNK
     Route: 065

REACTIONS (24)
  - Immunosuppression [Unknown]
  - Suicidal ideation [Unknown]
  - Coma [Unknown]
  - Amnesia [Unknown]
  - Cardiac disorder [Unknown]
  - Chest discomfort [Unknown]
  - Depression [Unknown]
  - Dizziness [Unknown]
  - Drug ineffective [Unknown]
  - General physical health deterioration [Unknown]
  - Heart rate increased [Unknown]
  - Hypersensitivity [Unknown]
  - Impaired driving ability [Unknown]
  - Insomnia [Unknown]
  - Nausea [Unknown]
  - Photosensitivity reaction [Unknown]
  - Product quality issue [Unknown]
  - Pyrexia [Unknown]
  - Rash [Unknown]
  - Vertigo [Unknown]
  - Visual impairment [Unknown]
  - Weight gain poor [Unknown]
  - Withdrawal syndrome [Unknown]
  - Wrong technique in product usage process [Unknown]
